FAERS Safety Report 12928667 (Version 1)
Quarter: 2016Q4

REPORT INFORMATION
  Report Type: Spontaneous
  Country: US (occurrence: US)
  Receive Date: 20161110
  Receipt Date: 20161110
  Transmission Date: 20170207
  Serious: Yes (Other)
  Sender: FDA-Public Use
  Company Number: US-AMGEN-USASP2016155329

PATIENT
  Age: 31 Year
  Sex: Male

DRUGS (15)
  1. BLINCYTO [Suspect]
     Active Substance: BLINATUMOMAB
     Indication: ACUTE LYMPHOCYTIC LEUKAEMIA
     Dosage: UNK
     Route: 065
     Dates: start: 20160809, end: 20160824
  2. BACTRIM DS [Concomitant]
     Active Substance: SULFAMETHOXAZOLE\TRIMETHOPRIM
     Dosage: 1 DF, BID
     Route: 048
  3. BACITRACIN. [Concomitant]
     Active Substance: BACITRACIN
     Dosage: UNK
  4. ETOPOSIDE. [Concomitant]
     Active Substance: ETOPOSIDE
     Dosage: UNK
     Dates: start: 20160613, end: 20160914
  5. PEPCID [Concomitant]
     Active Substance: FAMOTIDINE
     Dosage: 1 DF, QD AT BEDTIME
     Route: 048
  6. ATIVAN [Concomitant]
     Active Substance: LORAZEPAM
     Indication: NAUSEA
     Dosage: 1-2 TABS, Q6H AS NEEDED
     Route: 048
  7. AMBISOME [Concomitant]
     Active Substance: AMPHOTERICIN B
     Dosage: 250 MG, EVERY 24 HOURS
  8. CYTARABINE. [Concomitant]
     Active Substance: CYTARABINE
     Dosage: UNK
     Route: 037
     Dates: start: 20160122, end: 20160914
  9. ZOVIRAX [Concomitant]
     Active Substance: ACYCLOVIR
     Dosage: 0.5 DF, QD
     Route: 048
  10. AMBIEN [Concomitant]
     Active Substance: ZOLPIDEM TARTRATE
     Indication: SLEEP DISORDER
     Dosage: 1 DF, BEDTIME AS NEEDED
     Route: 048
  11. VINCRISTINE [Concomitant]
     Active Substance: VINCRISTINE
     Dosage: UNK
     Dates: start: 20160121, end: 20160914
  12. IFOSFAMIDE. [Concomitant]
     Active Substance: IFOSFAMIDE
     Dosage: UNK
     Dates: start: 20160824, end: 20160914
  13. METHOTREXATE. [Concomitant]
     Active Substance: METHOTREXATE
     Dosage: UNK
     Route: 037
     Dates: start: 20160122, end: 20160914
  14. ROXICODONE [Concomitant]
     Active Substance: OXYCODONE HYDROCHLORIDE
     Indication: PAIN
     Dosage: 1-2 TABS AS NEEDED; Q4H
     Route: 048
  15. BACTRIM DS [Concomitant]
     Active Substance: SULFAMETHOXAZOLE\TRIMETHOPRIM
     Dosage: 1 DF, Q2WK
     Route: 048

REACTIONS (3)
  - Rash [Unknown]
  - Acute lymphocytic leukaemia recurrent [Unknown]
  - Headache [Unknown]

NARRATIVE: CASE EVENT DATE: 20161006
